FAERS Safety Report 17697185 (Version 1)
Quarter: 2020Q2

REPORT INFORMATION
  Report Type: Spontaneous
  Country: US (occurrence: US)
  Receive Date: 20200423
  Receipt Date: 20200423
  Transmission Date: 20200714
  Serious: Yes (Other)
  Sender: FDA-Public Use
  Company Number: US-ASTRAZENECA-2020SE51970

PATIENT
  Age: 94 Year
  Sex: Female

DRUGS (2)
  1. QUETIAPINE. [Suspect]
     Active Substance: QUETIAPINE
     Indication: CHARLES BONNET SYNDROME
     Dosage: BY THE TIME OF DISCHARGE, THE QUETIAPINE DOSE WAS 50MG HS AND 25MG PRN DAILY
     Route: 048
  2. QUETIAPINE. [Suspect]
     Active Substance: QUETIAPINE
     Indication: CHARLES BONNET SYNDROME
     Dosage: QUETIAPINE WAS STARTED AT 12.5MG NIGHTLY (HS) AND 6.25MG PRN DAILY
     Route: 048

REACTIONS (5)
  - Hip fracture [Unknown]
  - Off label use [Unknown]
  - Fall [Unknown]
  - Product prescribing issue [Unknown]
  - Drug ineffective for unapproved indication [Unknown]
